FAERS Safety Report 4910789-0 (Version None)
Quarter: 2006Q1

REPORT INFORMATION
  Report Type: 
  Country: None (occurrence: None)
  Receive Date: 20060210
  Receipt Date: 20060210
  Transmission Date: 20060701
  Serious: Yes (Death, Hospitalization)
  Sender: FDA-Public Use
  Company Number: None

PATIENT
  Sex: Male
  Weight: 97.6 kg

DRUGS (4)
  1. CYCLOPHOSPHAMIDE [Suspect]
     Indication: CHRONIC LYMPHOCYTIC LEUKAEMIA
     Dosage: 2520 MG
     Dates: start: 20051228, end: 20060123
  2. PENTOSTATIN [Suspect]
     Dosage: 16.8 MG
     Dates: start: 20051228, end: 20060123
  3. RITUXIMAB (MOAB C2B8 ANTI CD20, CHIMERIC) (687451) [Suspect]
     Dosage: 2470 MG-
     Dates: start: 20051228, end: 20060123
  4. PREDNISONE [Concomitant]

REACTIONS (24)
  - ACUTE RESPIRATORY DISTRESS SYNDROME [None]
  - ALANINE AMINOTRANSFERASE INCREASED [None]
  - ASPARTATE AMINOTRANSFERASE INCREASED [None]
  - ASTHENIA [None]
  - BLOOD CALCIUM DECREASED [None]
  - BLOOD CREATININE INCREASED [None]
  - BLOOD PRESSURE SYSTOLIC DECREASED [None]
  - BLOOD UREA INCREASED [None]
  - CHRONIC LYMPHOCYTIC LEUKAEMIA [None]
  - CONFUSIONAL STATE [None]
  - COUGH [None]
  - DIARRHOEA [None]
  - DYSPNOEA [None]
  - FAECAL INCONTINENCE [None]
  - HAEMOGLOBIN DECREASED [None]
  - HYPOTENSION [None]
  - IMMUNOSUPPRESSION [None]
  - LUNG INFILTRATION [None]
  - MALAISE [None]
  - OXYGEN SATURATION DECREASED [None]
  - RENAL FAILURE [None]
  - RESPIRATORY DISTRESS [None]
  - SEPSIS SYNDROME [None]
  - WHITE BLOOD CELL COUNT INCREASED [None]
